FAERS Safety Report 23665638 (Version 1)
Quarter: 2024Q1

REPORT INFORMATION
  Report Type: Spontaneous
  Country: CA (occurrence: CA)
  Receive Date: 20240323
  Receipt Date: 20240323
  Transmission Date: 20240410
  Serious: Yes (Other)
  Sender: FDA-Public Use
  Company Number: CA-TEVA-VS-3173539

PATIENT

DRUGS (6)
  1. CEFAZOLIN [Suspect]
     Active Substance: CEFAZOLIN
     Indication: Foetal exposure during pregnancy
     Route: 064
  2. MORPHINE [Suspect]
     Active Substance: MORPHINE
     Indication: Foetal exposure during pregnancy
     Route: 064
  3. BUPIVACAINE [Suspect]
     Active Substance: BUPIVACAINE
     Indication: Foetal exposure during pregnancy
     Dosage: DOSAGE FORM; SOLUTION BLOCK/INFILTRATION
     Route: 064
  4. FENTANYL [Suspect]
     Active Substance: FENTANYL\FENTANYL CITRATE
     Indication: Foetal exposure during pregnancy
     Route: 064
  5. LIDOCAINE [Suspect]
     Active Substance: LIDOCAINE
     Indication: Foetal exposure during pregnancy
     Dosage: DOSAGE TEXT: OINTMENT TOPICAL
     Route: 064
  6. METOCLOPRAMIDE [Suspect]
     Active Substance: METOCLOPRAMIDE
     Indication: Foetal exposure during pregnancy
     Route: 064

REACTIONS (3)
  - Foetal exposure during delivery [Unknown]
  - Foetal exposure during pregnancy [Unknown]
  - Premature baby [Unknown]
